FAERS Safety Report 7993051-1 (Version None)
Quarter: 2011Q4

REPORT INFORMATION
  Report Type: 
  Country: None (occurrence: None)
  Receive Date: 20111219
  Receipt Date: 20111214
  Transmission Date: 20120403
  Serious: Yes (Hospitalization)
  Sender: FDA-Public Use
  Company Number: US-B.I. PHARMACEUTICALS,INC./RIDGEFIELD-2011-BP-28125BP

PATIENT
  Sex: Male

DRUGS (6)
  1. SIMVASTATIN [Concomitant]
     Indication: BLOOD CHOLESTEROL INCREASED
     Dosage: 40 MG
     Route: 048
  2. LISINOPRIL [Concomitant]
     Indication: HYPERTENSION
     Dosage: 7.5 MG
     Route: 048
  3. CARVEDILOL [Concomitant]
     Indication: HYPERTENSION
     Dosage: 10 MG
     Route: 048
  4. FLOMAX [Suspect]
     Indication: BENIGN PROSTATIC HYPERPLASIA
     Dosage: 0.4 MG
     Route: 048
     Dates: start: 20080101
  5. PLAVIX [Concomitant]
     Indication: PROPHYLAXIS
     Route: 048
     Dates: start: 20100101
  6. ASPIRIN [Concomitant]
     Indication: PROPHYLAXIS
     Dosage: 325 MG
     Route: 048
     Dates: start: 20100101

REACTIONS (7)
  - URINARY BLADDER HAEMORRHAGE [None]
  - URINARY RETENTION [None]
  - BLADDER PAIN [None]
  - URINARY INCONTINENCE [None]
  - HAEMATURIA [None]
  - BLADDER INJURY [None]
  - URINARY TRACT INFECTION [None]
